FAERS Safety Report 13209839 (Version 1)
Quarter: 2017Q1

REPORT INFORMATION
  Report Type: Spontaneous
  Country: US (occurrence: US)
  Receive Date: 20170209
  Receipt Date: 20170209
  Transmission Date: 20170428
  Serious: No
  Sender: FDA-Public Use
  Company Number: None

PATIENT
  Age: 18 Year
  Sex: Female

DRUGS (1)
  1. MYCOPHENOLATE TAB 500 MG [Suspect]
     Active Substance: MYCOPHENOLATE MOFETIL

REACTIONS (1)
  - Wrong technique in product usage process [None]

NARRATIVE: CASE EVENT DATE: 20140209
